FAERS Safety Report 7245552-1 (Version None)
Quarter: 2011Q1

REPORT INFORMATION
  Report Type: 
  Country: None (occurrence: None)
  Receive Date: 20110126
  Receipt Date: 20110121
  Transmission Date: 20110831
  Serious: Yes (Other)
  Sender: FDA-Public Use
  Company Number: US-PFIZER INC-2011015665

PATIENT
  Sex: Female
  Weight: 70.748 kg

DRUGS (2)
  1. ADVIL [Suspect]
     Indication: MYALGIA
  2. ADVIL [Suspect]
     Indication: SINUS CONGESTION
     Dosage: 200 MG, AS NEEDED
     Route: 048

REACTIONS (3)
  - RASH PAPULAR [None]
  - HYPOTHYROIDISM [None]
  - URTICARIA [None]
